FAERS Safety Report 21034500 (Version 1)
Quarter: 2022Q2

REPORT INFORMATION
  Report Type: Spontaneous
  Country: US (occurrence: None)
  Receive Date: 20220630
  Receipt Date: 20220630
  Transmission Date: 20220721
  Serious: Yes (Hospitalization, Other)
  Sender: FDA-Public Use
  Company Number: None

PATIENT
  Age: 32 Year
  Sex: Female
  Weight: 46.72 kg

DRUGS (2)
  1. ECULIZUMAB [Suspect]
     Active Substance: ECULIZUMAB
     Indication: Neuromyelitis optica spectrum disorder
     Dosage: FREQUENCY : EVERY OTHER WEEK;?
     Dates: start: 20220202
  2. ECULIZUMAB [Concomitant]
     Active Substance: ECULIZUMAB

REACTIONS (7)
  - Neuromyelitis optica spectrum disorder [None]
  - Disease recurrence [None]
  - Exposure during pregnancy [None]
  - Vaginal haemorrhage [None]
  - Premature separation of placenta [None]
  - Caesarean section [None]
  - Premature labour [None]

NARRATIVE: CASE EVENT DATE: 20220620
